FAERS Safety Report 22628421 (Version 1)
Quarter: 2023Q2

REPORT INFORMATION
  Report Type: Spontaneous
  Country: None (occurrence: US)
  Receive Date: 20230622
  Receipt Date: 20230622
  Transmission Date: 20230722
  Serious: No
  Sender: FDA-Public Use
  Company Number: US-B.Braun Medical Inc.-2142993

PATIENT
  Age: 60 Year
  Sex: Male

DRUGS (1)
  1. CEFOXITIN AND DEXTROSE [Suspect]
     Active Substance: CEFOXITIN SODIUM

REACTIONS (1)
  - Drug resistance [Unknown]
